FAERS Safety Report 14029155 (Version 1)
Quarter: 2017Q4

REPORT INFORMATION
  Report Type: Spontaneous
  Country: US (occurrence: None)
  Receive Date: 20171002
  Receipt Date: 20171002
  Transmission Date: 20180321
  Serious: Yes (Hospitalization)
  Sender: FDA-Public Use
  Company Number: None

PATIENT
  Age: 70 Year
  Sex: Female

DRUGS (17)
  1. CARB/LEVO100 [Concomitant]
  2. SIMVASTATIN. [Concomitant]
     Active Substance: SIMVASTATIN
  3. SUCRALFATE. [Concomitant]
     Active Substance: SUCRALFATE
  4. AMANTADINE. [Concomitant]
     Active Substance: AMANTADINE HYDROCHLORIDE
  5. DULOXETINE. [Concomitant]
     Active Substance: DULOXETINE
  6. PRAMIPEXOLE. [Concomitant]
     Active Substance: PRAMIPEXOLE
  7. PANNNTOPRAZOLE [Concomitant]
  8. NUPLAZID [Suspect]
     Active Substance: PIMAVANSERIN TARTRATE
     Indication: PARKINSON^S DISEASE
     Route: 048
     Dates: start: 201704
  9. APAP/CODEINE [Concomitant]
     Active Substance: ACETAMINOPHEN\CODEINE PHOSPHATE
  10. CELECOXIB. [Concomitant]
     Active Substance: CELECOXIB
  11. HCTZ [Concomitant]
     Active Substance: HYDROCHLOROTHIAZIDE
  12. HYDROMORPHON [Concomitant]
     Active Substance: HYDROMORPHONE
  13. METOPROLOL TARTRATE. [Concomitant]
     Active Substance: METOPROLOL TARTRATE
  14. RASAGILNE [Concomitant]
  15. TOPIRAMATE. [Concomitant]
     Active Substance: TOPIRAMATE
  16. GABAPENTIN. [Concomitant]
     Active Substance: GABAPENTIN
  17. FERROUS SULF [Concomitant]
     Active Substance: FERROUS SULFATE

REACTIONS (3)
  - Hallucination [None]
  - Drug dose omission [None]
  - Surgery [None]

NARRATIVE: CASE EVENT DATE: 20170925
